FAERS Safety Report 17663293 (Version 1)
Quarter: 2020Q2

REPORT INFORMATION
  Report Type: Spontaneous
  Country: BR (occurrence: BR)
  Receive Date: 20200413
  Receipt Date: 20200413
  Transmission Date: 20200713
  Serious: Yes (Other)
  Sender: FDA-Public Use
  Company Number: BR-ADVANZ PHARMA-202004002869

PATIENT

DRUGS (1)
  1. METOPROLOL , HYDROCHLOROTHIAZIDE [Suspect]
     Active Substance: HYDROCHLOROTHIAZIDE\METOPROLOL
     Indication: PRODUCT USED FOR UNKNOWN INDICATION
     Dosage: UNK (SELOPRESS ZOK)
     Route: 048

REACTIONS (4)
  - Thyroid cancer [Unknown]
  - Paraesthesia [Unknown]
  - Chest pain [Unknown]
  - Product administration error [Unknown]

NARRATIVE: CASE EVENT DATE: 20191002
